FAERS Safety Report 18734815 (Version 1)
Quarter: 2021Q1

REPORT INFORMATION
  Report Type: Spontaneous
  Country: US (occurrence: US)
  Receive Date: 20210113
  Receipt Date: 20210113
  Transmission Date: 20210419
  Serious: Yes (Death, Life-Threatening)
  Sender: FDA-Public Use
  Company Number: US-DRREDDYS-USA/USA/21/0130970

PATIENT
  Age: 64 Year
  Sex: Male

DRUGS (2)
  1. ABRAXANE [Suspect]
     Active Substance: PACLITAXEL
     Indication: MYELOMA CAST NEPHROPATHY
  2. GEMCITABINE. [Suspect]
     Active Substance: GEMCITABINE
     Indication: MYELOMA CAST NEPHROPATHY

REACTIONS (1)
  - Drug ineffective [Fatal]
